FAERS Safety Report 5924447-7 (Version None)
Quarter: 2008Q4

REPORT INFORMATION
  Report Type: 
  Country: None (occurrence: None)
  Receive Date: 20081020
  Receipt Date: 20081010
  Transmission Date: 20090506
  Serious: No
  Sender: FDA-Public Use
  Company Number: US-B.I. PHARMACEUTICALS,INC./RIDGEFIELD-2008-BP-15686BP

PATIENT
  Sex: Male

DRUGS (1)
  1. VIRAMUNE [Suspect]

REACTIONS (3)
  - HEPATIC ENZYME INCREASED [None]
  - HEPATITIS ACUTE [None]
  - HEPATITIS VIRAL [None]
